FAERS Safety Report 9051899 (Version 5)
Quarter: 2013Q2

REPORT INFORMATION
  Report Type: Spontaneous
  Country: GB (occurrence: GB)
  Receive Date: 20130207
  Receipt Date: 20130605
  Transmission Date: 20140414
  Serious: No
  Sender: FDA-Public Use
  Company Number: GB-JNJFOC-20130113555

PATIENT
  Sex: Female
  Weight: 87 kg

DRUGS (1)
  1. DUROGESIC DTRANS [Suspect]
     Indication: ANALGESIC THERAPY
     Route: 062
     Dates: start: 20121231

REACTIONS (5)
  - Wrong technique in drug usage process [Unknown]
  - Inappropriate schedule of drug administration [Unknown]
  - Product quality issue [Unknown]
  - Wrong technique in drug usage process [Unknown]
  - Wrong technique in drug usage process [Unknown]
